FAERS Safety Report 4455587-X (Version None)
Quarter: 2004Q3

REPORT INFORMATION
  Report Type: 
  Country: None (occurrence: None)
  Receive Date: 20040917
  Receipt Date: 20040901
  Transmission Date: 20050211
  Serious: Yes (Death, Other)
  Sender: FDA-Public Use
  Company Number: EWC040940439

PATIENT
  Age: 54 Year
  Sex: Female
  Weight: 36 kg

DRUGS (2)
  1. GEMCITABINE HYDROCHLORIDE-IV (GEMCITABINE) [Suspect]
     Indication: PANCREATIC CARCINOMA
     Dosage: 1 G/2 OTHER
     Dates: start: 20040813, end: 20040820
  2. OXALIPLATIN [Concomitant]

REACTIONS (2)
  - BONE MARROW DEPRESSION [None]
  - MULTI-ORGAN FAILURE [None]
